FAERS Safety Report 7111413-1 (Version None)
Quarter: 2010Q4

REPORT INFORMATION
  Report Type: 
  Country: None (occurrence: None)
  Receive Date: 20101118
  Receipt Date: 20101109
  Transmission Date: 20110411
  Serious: Yes (Hospitalization)
  Sender: FDA-Public Use
  Company Number: US-JNJFOC-20101103440

PATIENT
  Sex: Female
  Weight: 93.9 kg

DRUGS (7)
  1. REMICADE [Suspect]
     Indication: COLITIS ULCERATIVE
     Route: 042
  2. REMICADE [Suspect]
     Dosage: ONCE A WEEK FOR 3 WEEKS
     Route: 042
  3. SYNTHROID [Concomitant]
     Indication: BASEDOW'S DISEASE
     Route: 048
  4. LASIX [Concomitant]
     Indication: HYPERTENSION
     Route: 048
  5. POTASSIUM CHLORIDE [Concomitant]
     Indication: BLOOD POTASSIUM DECREASED
     Dosage: REPORTED AS ^KLORN^
  6. METOPROLOL [Concomitant]
     Indication: HYPERTENSION
     Dosage: REPORTED AS ^METROPOLO^
     Route: 048
  7. ZOCOR [Concomitant]
     Indication: BLOOD CHOLESTEROL
     Route: 048

REACTIONS (5)
  - DYSPNOEA [None]
  - PULMONARY THROMBOSIS [None]
  - THROMBOSIS [None]
  - URINARY TRACT INFECTION [None]
  - WEIGHT INCREASED [None]
